FAERS Safety Report 17514245 (Version 2)
Quarter: 2020Q1

REPORT INFORMATION
  Report Type: Spontaneous
  Country: US (occurrence: US)
  Receive Date: 20200306
  Receipt Date: 20200309
  Transmission Date: 20200409
  Serious: Yes (Hospitalization, Other)
  Sender: FDA-Public Use
  Company Number: US-SHIRE-US202003098

PATIENT
  Sex: Male
  Weight: 67.57 kg

DRUGS (1)
  1. GATTEX [Suspect]
     Active Substance: TEDUGLUTIDE\WATER
     Indication: SHORT-BOWEL SYNDROME
     Dosage: 0.362 UNK, 1X/DAY:QD
     Route: 058
     Dates: start: 20160523

REACTIONS (2)
  - Intestinal obstruction [Recovered/Resolved]
  - Dehydration [Recovered/Resolved]
